FAERS Safety Report 14774258 (Version 1)
Quarter: 2018Q2

REPORT INFORMATION
  Report Type: Report from Study
  Country: US (occurrence: MX)
  Receive Date: 20180418
  Receipt Date: 20180418
  Transmission Date: 20180711
  Serious: Yes (Death, Other)
  Sender: FDA-Public Use
  Company Number: US-SUNOVION-2018SUN001486

PATIENT
  Age: 90 Year
  Sex: Male

DRUGS (2)
  1. MIFLONIDE [Suspect]
     Active Substance: BUDESONIDE
     Indication: PNEUMONIA
     Dosage: QHS, 1 SHOT
     Route: 055
  2. INDACATEROL [Suspect]
     Active Substance: INDACATEROL
     Indication: CHRONIC OBSTRUCTIVE PULMONARY DISEASE
     Dosage: 1 DF, Q12
     Route: 055
     Dates: end: 20180206

REACTIONS (8)
  - Myocardial infarction [Fatal]
  - Glioblastoma [Fatal]
  - Pneumonia [Recovered/Resolved]
  - Drug prescribing error [Unknown]
  - Product use in unapproved indication [Unknown]
  - Transient ischaemic attack [Recovered/Resolved]
  - Seizure [Fatal]
  - Pneumonia [Recovered/Resolved]

NARRATIVE: CASE EVENT DATE: 201709
